FAERS Safety Report 9291749 (Version 3)
Quarter: 2013Q3

REPORT INFORMATION
  Report Type: Report from Study
  Country: US (occurrence: US)
  Receive Date: 20130516
  Receipt Date: 20130722
  Transmission Date: 20140515
  Serious: Yes (Hospitalization, Other)
  Sender: FDA-Public Use
  Company Number: US-ROCHE-1201277

PATIENT
  Sex: Female

DRUGS (6)
  1. PEGASYS [Suspect]
     Indication: CHRONIC HEPATITIS C
     Dosage: WEEK 13
     Route: 058
     Dates: start: 20121212
  2. PEGASYS [Suspect]
     Dosage: WEEK 13
     Route: 058
  3. RIBAPAK [Suspect]
     Indication: CHRONIC HEPATITIS C
     Route: 065
     Dates: start: 20121212
  4. RIBAPAK [Suspect]
     Route: 065
  5. RIBAPAK [Suspect]
     Route: 065
  6. EPOGEN [Concomitant]

REACTIONS (19)
  - White blood cell count decreased [Not Recovered/Not Resolved]
  - Red blood cell count decreased [Not Recovered/Not Resolved]
  - Platelet count decreased [Recovered/Resolved]
  - Fatigue [Not Recovered/Not Resolved]
  - Asthenia [Not Recovered/Not Resolved]
  - Somnolence [Unknown]
  - Anaemia [Unknown]
  - Insomnia [Unknown]
  - Irritability [Unknown]
  - Dyspnoea [Unknown]
  - Chest pain [Unknown]
  - Tongue discolouration [Unknown]
  - Glossitis [Unknown]
  - Glossodynia [Unknown]
  - Ingrowing nail [Unknown]
  - Ulcer [Unknown]
  - Crying [Unknown]
  - Carpal tunnel syndrome [Unknown]
  - Pain in extremity [Unknown]
